FAERS Safety Report 8058857-1 (Version None)
Quarter: 2012Q1

REPORT INFORMATION
  Report Type: 
  Country: None (occurrence: None)
  Receive Date: 20120119
  Receipt Date: 20120119
  Transmission Date: 20120608
  Serious: Yes (Hospitalization)
  Sender: FDA-Public Use
  Company Number: None

PATIENT
  Age: 67 Year
  Sex: Female
  Weight: 54.1 kg

DRUGS (12)
  1. TRAZODONE HYDROCHLORIDE [Concomitant]
  2. LASIX [Concomitant]
  3. FENOFIBRATE [Concomitant]
  4. VIT D3 [Concomitant]
  5. POTASSIUM CHLORIDE [Concomitant]
  6. CITALOPRAM HYDROBROMIDE [Concomitant]
  7. LOPRESSOR [Concomitant]
  8. PROTONIX [Concomitant]
  9. COUMADIN [Suspect]
     Dosage: 2 MG / 3 MG EOD / EOD PO/PO
     Route: 048
  10. ASPIRIN [Suspect]
     Dosage: 81 MG DAILY PO
     Route: 048
  11. SIMVASTATIN [Concomitant]
  12. FERRUS SULFATE [Concomitant]

REACTIONS (1)
  - DIVERTICULITIS [None]
